FAERS Safety Report 6167660-9 (Version None)
Quarter: 2009Q2

REPORT INFORMATION
  Report Type: 
  Country: None (occurrence: None)
  Receive Date: 20090424
  Receipt Date: 20090417
  Transmission Date: 20091009
  Serious: Yes (Hospitalization, Other)
  Sender: FDA-Public Use
  Company Number: PHHY2009DE05693

PATIENT
  Sex: Female

DRUGS (7)
  1. RASILEZ [Suspect]
     Dosage: 150 MG, UNK
  2. DIOVAN HCT [Suspect]
     Dosage: 160 MG VALSARTAN/25 MG HYDROCHLOROTHIAZIDE
  3. ASS ^CT-ARZNEIMITTEL^ [Concomitant]
     Dosage: 100 UNK, UNK
  4. RAMIPRIL [Concomitant]
     Dosage: 10 UNK, UNK
  5. SIMVA [Concomitant]
     Dosage: 10
  6. OMEPRAZOL ^ACYFABRIK^ [Concomitant]
  7. VERAPAMIL [Concomitant]

REACTIONS (3)
  - ACUTE CORONARY SYNDROME [None]
  - STENT OCCLUSION [None]
  - SURGERY [None]
